FAERS Safety Report 8906710 (Version 8)
Quarter: 2013Q2

REPORT INFORMATION
  Report Type: Spontaneous
  Country: US (occurrence: US)
  Receive Date: 20121114
  Receipt Date: 20130507
  Transmission Date: 20140414
  Serious: Yes (Life-Threatening, Hospitalization)
  Sender: FDA-Public Use
  Company Number: US-SANOFI-AVENTIS-2012SA082897

PATIENT
  Age: 78 Year
  Sex: Female
  Weight: 71 kg

DRUGS (7)
  1. PLAVIX [Suspect]
     Indication: ACUTE CORONARY SYNDROME
     Route: 048
     Dates: start: 20120825, end: 20120825
  2. ASPIRIN [Suspect]
     Indication: ACUTE CORONARY SYNDROME
     Route: 048
     Dates: start: 20120825, end: 20120908
  3. BLINDED THERAPY [Suspect]
     Indication: ACUTE CORONARY SYNDROME
     Route: 042
     Dates: start: 20120825, end: 20120826
  4. HEPARIN [Concomitant]
     Dosage: DOSE:5000 UNIT(S)
     Route: 041
     Dates: start: 20120824, end: 20120825
  5. CARVEDILOL [Concomitant]
     Dates: start: 20120825, end: 20120908
  6. LISINOPRIL [Concomitant]
     Dates: start: 20120825, end: 20120908
  7. METOPROLOL [Concomitant]
     Dates: start: 20120825, end: 20120908

REACTIONS (4)
  - Post procedural haemorrhage [Recovered/Resolved]
  - Compartment syndrome [Recovered/Resolved]
  - Post procedural haemorrhage [Recovered/Resolved]
  - Pericardial haemorrhage [Recovered/Resolved]
